FAERS Safety Report 8729770 (Version 3)
Quarter: 2012Q4

REPORT INFORMATION
  Report Type: Report from Study
  Country: FR (occurrence: FR)
  Receive Date: 20120817
  Receipt Date: 20121108
  Transmission Date: 20130627
  Serious: Yes (Hospitalization)
  Sender: FDA-Public Use
  Company Number: FR-PFIZER INC-2012192513

PATIENT
  Age: 64 Year
  Sex: Female
  Weight: 52 kg

DRUGS (15)
  1. FLUOROURACIL [Suspect]
     Indication: METASTATIC COLORECTAL CANCER
     Dosage: 400 mg/m2, on day one of each 14 day cycle
     Route: 042
     Dates: start: 20120503
  2. FLUOROURACIL [Suspect]
     Dosage: 2400 mg/m2, on day one and two of each 14 day cycle
     Route: 042
  3. IRINOTECAN HCL [Suspect]
     Indication: COLORECTAL CANCER METASTATIC
     Dosage: 180 mg/m2, on day one of each 14 day cycle
     Route: 042
     Dates: start: 20120503
  4. FOLINIC ACID [Suspect]
     Indication: COLORECTAL CANCER METASTATIC
     Dosage: 400 mg/m2, on day one of each 14 day cycle
     Route: 042
     Dates: start: 20120503
  5. BLINDED THERAPY [Suspect]
     Indication: COLORECTAL CANCER METASTATIC
     Dosage: UNK
     Dates: start: 20120503
  6. TOPALGIC [Concomitant]
     Indication: LUMBAR PAIN
     Dosage: UNK
     Dates: start: 20120515
  7. ACTISKENAN [Concomitant]
     Indication: LUMBAR PAIN
     Dosage: UNK
     Dates: start: 20120523
  8. DUROGESIC [Concomitant]
     Indication: LUMBAR PAIN
     Dosage: UNK
     Dates: start: 20120523
  9. DAFALGAN CODEINE [Concomitant]
     Indication: LUMBAR PAIN
     Dosage: UNK
     Dates: start: 20120428
  10. FOSAMAX [Concomitant]
     Indication: OSTEOPOROSIS
     Dosage: UNK
     Dates: start: 2011
  11. DEBRIDAT [Concomitant]
     Indication: ABDOMINAL DISTENSION
     Dosage: UNK
     Dates: start: 20120515
  12. ARANESP [Concomitant]
     Indication: ANEMIA
     Dosage: UNK
     Dates: start: 20120611
  13. LORAMYC [Concomitant]
     Indication: CANDIDIASIS
  14. INNOHEP [Concomitant]
     Indication: VENOUS THROMBOSIS
     Dosage: UNK
     Dates: start: 20120524
  15. SOLUPRED [Concomitant]
     Indication: PAIN
     Dosage: UNK
     Dates: start: 20120611

REACTIONS (1)
  - Spinal fracture [Recovered/Resolved]
